FAERS Safety Report 5898561-9 (Version None)
Quarter: 2008Q3

REPORT INFORMATION
  Report Type: 
  Country: None (occurrence: None)
  Receive Date: 20080925
  Receipt Date: 20080619
  Transmission Date: 20090109
  Serious: No
  Sender: FDA-Public Use
  Company Number: A0705560A

PATIENT
  Age: 32 Year
  Sex: Female
  Weight: 58.2 kg

DRUGS (5)
  1. WELLBUTRIN XL [Suspect]
     Indication: DEPRESSION
     Dosage: 300MG PER DAY
     Route: 048
     Dates: start: 20070910
  2. LAMICTAL [Suspect]
     Indication: DEPRESSION
     Route: 048
  3. BUPROPION HYDROCHLORIDE [Suspect]
     Indication: DEPRESSION
     Route: 048
  4. ZOLOFT [Concomitant]
     Indication: ANXIETY
     Route: 048
  5. LEVOXYL [Concomitant]
     Indication: HYPOTHYROIDISM
     Route: 048
     Dates: start: 20040101

REACTIONS (4)
  - DRUG EXPOSURE DURING PREGNANCY [None]
  - DYSPNOEA [None]
  - LIVE BIRTH [None]
  - TACHYCARDIA [None]
